FAERS Safety Report 18773203 (Version 1)
Quarter: 2021Q1

REPORT INFORMATION
  Report Type: Spontaneous
  Country: US (occurrence: US)
  Receive Date: 20210121
  Receipt Date: 20210121
  Transmission Date: 20210419
  Serious: No
  Sender: FDA-Public Use
  Company Number: None

PATIENT
  Age: 57 Year
  Sex: Female

DRUGS (1)
  1. ODOMZO [Suspect]
     Active Substance: SONIDEGIB
     Route: 048
     Dates: start: 201908

REACTIONS (4)
  - Localised infection [None]
  - Diabetes mellitus [None]
  - Diabetic retinopathy [None]
  - Therapy cessation [None]

NARRATIVE: CASE EVENT DATE: 20191129
